FAERS Safety Report 7512029-5 (Version None)
Quarter: 2011Q2

REPORT INFORMATION
  Report Type: 
  Country: None (occurrence: None)
  Receive Date: 20110531
  Receipt Date: 20110519
  Transmission Date: 20111010
  Serious: Yes (Hospitalization)
  Sender: FDA-Public Use
  Company Number: US-ELI_LILLY_AND_COMPANY-US201104002421

PATIENT
  Sex: Female
  Weight: 226.8 kg

DRUGS (4)
  1. HUMALOG MIX 75/25 [Suspect]
     Dosage: UNK UNK, PRN
     Route: 065
  2. HUMALOG MIX 75/25 [Suspect]
     Indication: DIABETES MELLITUS
     Dosage: UNK UNK, PRN
     Route: 065
  3. HUMALOG MIX 75/25 [Suspect]
     Dosage: UNK UNK, PRN
     Route: 065
  4. HUMALOG MIX 75/25 [Suspect]
     Dosage: UNK, PRN

REACTIONS (2)
  - PAIN IN EXTREMITY [None]
  - HOSPITALISATION [None]
